FAERS Safety Report 7886201-9 (Version None)
Quarter: 2011Q4

REPORT INFORMATION
  Report Type: 
  Country: None (occurrence: None)
  Receive Date: 20111102
  Receipt Date: 20110627
  Transmission Date: 20120403
  Serious: No
  Sender: FDA-Public Use
  Company Number: US-AMGEN-USASP2011032968

PATIENT
  Sex: Female

DRUGS (1)
  1. ENBREL [Suspect]
     Indication: PAIN
     Dosage: UNK

REACTIONS (3)
  - INTERVERTEBRAL DISC PROTRUSION [None]
  - DRUG INEFFECTIVE [None]
  - FALL [None]
